FAERS Safety Report 17350590 (Version 2)
Quarter: 2020Q3

REPORT INFORMATION
  Report Type: Spontaneous
  Country: US (occurrence: US)
  Receive Date: 20200130
  Receipt Date: 20200820
  Transmission Date: 20201102
  Serious: Yes (Other)
  Sender: FDA-Public Use
  Company Number: US-GILEAD-2020-0448729

PATIENT
  Age: 39 Year
  Sex: Male

DRUGS (19)
  1. VITAMIN D3 [Concomitant]
     Active Substance: CHOLECALCIFEROL
  2. CRIXIVAN [Concomitant]
     Active Substance: INDINAVIR SULFATE
  3. EPZICOM [Concomitant]
     Active Substance: ABACAVIR SULFATE\LAMIVUDINE
  4. FUZEON [Concomitant]
     Active Substance: ENFUVIRTIDE
  5. NORVIR [Concomitant]
     Active Substance: RITONAVIR
  6. ZERIT [Concomitant]
     Active Substance: STAVUDINE
  7. TRUVADA [Suspect]
     Active Substance: EMTRICITABINE\TENOFOVIR DISOPROXIL FUMARATE
     Indication: HIV INFECTION
     Dosage: UNK
     Route: 048
     Dates: start: 20090901, end: 20160308
  8. VIRAMUNE [Concomitant]
     Active Substance: NEVIRAPINE
  9. SUSTIVA [Concomitant]
     Active Substance: EFAVIRENZ
  10. ISENTRESS [Concomitant]
     Active Substance: RALTEGRAVIR POTASSIUM
  11. REYATAZ [Concomitant]
     Active Substance: ATAZANAVIR SULFATE
  12. VIDEX [Concomitant]
     Active Substance: DIDANOSINE
  13. VIREAD [Suspect]
     Active Substance: TENOFOVIR DISOPROXIL FUMARATE
     Indication: HIV INFECTION
     Dosage: UNK
     Route: 048
     Dates: start: 2010, end: 2015
  14. COMBIVIR [Concomitant]
     Active Substance: LAMIVUDINE\ZIDOVUDINE
  15. KALETRA [Concomitant]
     Active Substance: LOPINAVIR\RITONAVIR
  16. RETROVIR [Concomitant]
     Active Substance: ZIDOVUDINE
  17. DESCOVY [Concomitant]
     Active Substance: EMTRICITABINE\TENOFOVIR ALAFENAMIDE FUMARATE
  18. TIVICAY [Concomitant]
     Active Substance: DOLUTEGRAVIR SODIUM
  19. EPIVIR [Concomitant]
     Active Substance: LAMIVUDINE

REACTIONS (9)
  - Anhedonia [Not Recovered/Not Resolved]
  - Chronic kidney disease [Not Recovered/Not Resolved]
  - Ankle fracture [Unknown]
  - Pain [Not Recovered/Not Resolved]
  - Depression [Not Recovered/Not Resolved]
  - Emotional distress [Not Recovered/Not Resolved]
  - Anxiety [Not Recovered/Not Resolved]
  - Economic problem [Not Recovered/Not Resolved]
  - Osteopenia [Not Recovered/Not Resolved]

NARRATIVE: CASE EVENT DATE: 20111227
